FAERS Safety Report 6303024-2 (Version None)
Quarter: 2009Q3

REPORT INFORMATION
  Report Type: 
  Country: None (occurrence: None)
  Receive Date: 20090810
  Receipt Date: 20090730
  Transmission Date: 20100115
  Serious: Yes (Other)
  Sender: FDA-Public Use
  Company Number: US-JNJFOC-20090800114

PATIENT
  Sex: Female
  Weight: 53.52 kg

DRUGS (1)
  1. ULTRAM [Suspect]
     Indication: FIBROMYALGIA
     Route: 048

REACTIONS (10)
  - ANXIETY [None]
  - COGNITIVE DISORDER [None]
  - DEPRESSION [None]
  - DRUG DEPENDENCE [None]
  - EXPRESSIVE LANGUAGE DISORDER [None]
  - LIBIDO DECREASED [None]
  - MEMORY IMPAIRMENT [None]
  - MOTOR DYSFUNCTION [None]
  - PANIC ATTACK [None]
  - WITHDRAWAL SYNDROME [None]
